FAERS Safety Report 24822440 (Version 4)
Quarter: 2025Q3

REPORT INFORMATION
  Report Type: Report from Study
  Country: US (occurrence: US)
  Receive Date: 20250108
  Receipt Date: 20250810
  Transmission Date: 20251020
  Serious: Yes (Hospitalization, Other)
  Sender: ALEXION PHARMACEUTICALS
  Company Number: US-AstraZeneca-CH-00780075A

PATIENT
  Age: 69 Year
  Sex: Male

DRUGS (1)
  1. ACALABRUTINIB [Suspect]
     Active Substance: ACALABRUTINIB
     Dosage: 100 MILLIGRAM, Q12H

REACTIONS (25)
  - Disease complication [Unknown]
  - Acute kidney injury [Unknown]
  - Fatigue [Unknown]
  - Abdominal pain [Unknown]
  - Splenomegaly [Unknown]
  - Hypercalcaemia [Unknown]
  - Weight decreased [Unknown]
  - Neutrophil count decreased [Unknown]
  - Lymphocyte count increased [Unknown]
  - Monocyte count increased [Unknown]
  - Red blood cell count decreased [Unknown]
  - Haemoglobin decreased [Unknown]
  - Haematocrit decreased [Unknown]
  - Mean cell volume increased [Unknown]
  - Mean cell haemoglobin concentration [Unknown]
  - Platelet count decreased [Unknown]
  - Platelet disorder [Unknown]
  - Blood chloride increased [Unknown]
  - Anion gap decreased [Unknown]
  - Blood urea increased [Unknown]
  - Blood creatinine increased [Unknown]
  - EGFR status assay [Unknown]
  - Blood osmolarity increased [Unknown]
  - Globulins increased [Unknown]
  - Albumin globulin ratio [Unknown]
